FAERS Safety Report 6599439-8 (Version None)
Quarter: 2010Q1

REPORT INFORMATION
  Report Type: 
  Country: None (occurrence: None)
  Receive Date: 20100216
  Receipt Date: 20100127
  Transmission Date: 20100710
  Serious: No
  Sender: FDA-Public Use
  Company Number: 2010RR-30773

PATIENT
  Age: 52 Year
  Sex: Female

DRUGS (4)
  1. METFORMIN HCL [Suspect]
     Indication: TYPE 2 DIABETES MELLITUS
     Dosage: 850 MG, TID
  2. GLICLAZIDE (GLICLAZIDE) UNKNOWN [Suspect]
     Indication: TYPE 2 DIABETES MELLITUS
     Dosage: 80 MG, BID
  3. SIMVASTATIN [Suspect]
     Indication: TYPE 2 DIABETES MELLITUS
  4. VICTOZA [Suspect]
     Indication: TYPE 2 DIABETES MELLITUS
     Dates: start: 20091001

REACTIONS (5)
  - ABDOMINAL PAIN UPPER [None]
  - DIABETES MELLITUS INADEQUATE CONTROL [None]
  - JAUNDICE [None]
  - LIVER FUNCTION TEST ABNORMAL [None]
  - PANCREATIC CARCINOMA [None]
